FAERS Safety Report 7042601-0 (Version None)
Quarter: 2010Q4

REPORT INFORMATION
  Report Type: 
  Country: None (occurrence: None)
  Receive Date: 20101007
  Receipt Date: 20100917
  Transmission Date: 20110411
  Serious: Yes (Other)
  Sender: FDA-Public Use
  Company Number: JPI-P-012235

PATIENT
  Age: 49 Year
  Sex: Female

DRUGS (27)
  1. XYREM [Suspect]
     Indication: FIBROMYALGIA
     Dosage: 4.5 GM (2.25 GM, 2 IN 1 D), ORAL; 2.25 GM (2.25 GM, 1 IN 1 D), ORAL
     Route: 048
     Dates: start: 20100101
  2. XYREM [Suspect]
     Indication: FIBROMYALGIA
     Dosage: 4.5 GM (2.25 GM, 2 IN 1 D), ORAL; 2.25 GM (2.25 GM, 1 IN 1 D), ORAL
     Route: 048
     Dates: start: 20100328
  3. OXYCODONE HCL [Concomitant]
  4. ACETAMINOPHEN AND HYDROCODONE [Concomitant]
  5. FEXOFENADINE AND PSEUDOEPHEDRINE [Concomitant]
  6. FEXOFENADINE HCL [Concomitant]
  7. AMANTADINE [Concomitant]
  8. ESCITALOPRAM OXALATE [Concomitant]
  9. DESVENLAFAXINE [Concomitant]
  10. LEVOTHYROXINE [Concomitant]
  11. MONTELUKAST SODIUM [Concomitant]
  12. PREGABALIN [Concomitant]
  13. SLOVENT 220 [Concomitant]
  14. SALMETEROL [Concomitant]
  15. TIOTROPIUM BROMIDE [Concomitant]
  16. FLUTICASONE PROPIONATE [Concomitant]
  17. AZELASTINE HCL [Concomitant]
  18. HYDROXYCHLOROQUINE [Concomitant]
  19. RISEDRONATE SODIUM [Concomitant]
  20. OMEPRAZOLE [Concomitant]
  21. ARMODAFINIL [Concomitant]
  22. ERGOCALCIFEROL [Concomitant]
  23. DIAZEPAM [Concomitant]
  24. CARISOPRODOL [Concomitant]
  25. PROMETHAZINE [Concomitant]
  26. HYDROCORTISONE [Concomitant]
  27. VITAMIN B-12 [Concomitant]

REACTIONS (10)
  - ADRENAL INSUFFICIENCY [None]
  - BLOOD PRESSURE INCREASED [None]
  - BONE PAIN [None]
  - DIZZINESS [None]
  - DRUG EFFECT DECREASED [None]
  - DYSGEUSIA [None]
  - HEADACHE [None]
  - SJOGREN'S SYNDROME [None]
  - SYSTEMIC LUPUS ERYTHEMATOSUS [None]
  - TREATMENT NONCOMPLIANCE [None]
